FAERS Safety Report 13744104 (Version 1)
Quarter: 2017Q3

REPORT INFORMATION
  Report Type: Spontaneous
  Country: FR (occurrence: FR)
  Receive Date: 20170712
  Receipt Date: 20170712
  Transmission Date: 20171127
  Serious: Yes (Hospitalization)
  Sender: FDA-Public Use
  Company Number: FR-ROCHE-1961335

PATIENT
  Sex: Female

DRUGS (8)
  1. VINCRISTINE [Concomitant]
     Active Substance: VINCRISTINE
     Dosage: LATER RECEIVED ON 24-MAY-2017, 13-JUN-2017 AND NEXT CURE PLANNED ON 10-JUL-2017
     Route: 065
     Dates: start: 20170425
  2. PANTOPRAZOLE [Concomitant]
     Active Substance: PANTOPRAZOLE
     Dosage: 40 UNIT NOT REPORTED
     Route: 065
  3. SPECIAFOLDINE [Concomitant]
     Active Substance: FOLIC ACID
     Dosage: 5 UNIT NOT REPORTED, 1 TABLET WEDNESDAY AND THURSDAY
     Route: 065
  4. PREDNISONE. [Concomitant]
     Active Substance: PREDNISONE
     Dosage: LATER RECEIVED ON 24-MAY-2017, 13-JUN-2017 AND NEXT CURE PLANNED ON 10-JUL-2017
     Route: 065
     Dates: start: 20170425
  5. BACTRIM [Concomitant]
     Active Substance: SULFAMETHOXAZOLE\TRIMETHOPRIM
     Dosage: 1 TABLET MONDAY, WEDNESDAY AND FRIDAY
     Route: 065
  6. ZELITREX [Concomitant]
     Active Substance: VALACYCLOVIR HYDROCHLORIDE
     Dosage: 500 UNIT NOT REPORTED
     Route: 065
  7. MABTHERA [Suspect]
     Active Substance: RITUXIMAB
     Indication: NON-HODGKIN^S LYMPHOMA
     Dosage: 3 CURES?LATER RECEIVED ON 24-MAY-2017, 13-JUN-2017 AND NEXT CURE PLANNED ON 10-JUL-2017
     Route: 042
     Dates: start: 20170425
  8. ENDOXAN [Concomitant]
     Active Substance: CYCLOPHOSPHAMIDE
     Dosage: LATER RECEIVED ON 24-MAY-2017, 13-JUN-2017 AND NEXT CURE PLANNED ON 10-JUL-2017
     Route: 065
     Dates: start: 20170425

REACTIONS (1)
  - Productive cough [Recovered/Resolved]
